FAERS Safety Report 20939274 (Version 1)
Quarter: 2022Q2

REPORT INFORMATION
  Report Type: Spontaneous
  Country: US (occurrence: US)
  Receive Date: 20220609
  Receipt Date: 20220609
  Transmission Date: 20220721
  Serious: Yes (Hospitalization, Other)
  Sender: FDA-Public Use
  Company Number: US-FreseniusKabi-FK202207938

PATIENT
  Age: 30 Year
  Sex: Male

DRUGS (3)
  1. KETOROLAC TROMETHAMINE [Suspect]
     Active Substance: KETOROLAC TROMETHAMINE
     Indication: Fibula fracture
     Dosage: 1 DOSE
     Route: 042
  2. NAPROXEN [Suspect]
     Active Substance: NAPROXEN
     Indication: Fibula fracture
     Dosage: 2 DOSE
  3. NAPROXEN [Suspect]
     Active Substance: NAPROXEN
     Dosage: 2 DAYS LATER

REACTIONS (1)
  - Acute kidney injury [Unknown]
